FAERS Safety Report 9286696 (Version 3)
Quarter: 2013Q4

REPORT INFORMATION
  Report Type: Spontaneous
  Country: CH (occurrence: CH)
  Receive Date: 20130513
  Receipt Date: 20131202
  Transmission Date: 20140711
  Serious: Yes (Hospitalization)
  Sender: FDA-Public Use
  Company Number: CH-PFIZER INC-2009233441

PATIENT
  Age: 36 Year
  Sex: Female

DRUGS (5)
  1. PANTOPRAZOLE [Suspect]
     Indication: GASTROOESOPHAGEAL REFLUX DISEASE
     Dosage: 20 MG, DAILY
  2. MIRTAZAPINE [Suspect]
     Dosage: 30 MG, DAILY
  3. IRON POLYMALTOSE [Concomitant]
     Indication: IRON DEFICIENCY
     Dosage: 20 MG, 1X/DAY
     Route: 065
  4. CALCIUM [Concomitant]
     Indication: CALCIUM DEFICIENCY
     Dosage: UNK
     Route: 065
  5. ALENDRONATE SODIUM [Concomitant]
     Dosage: 70 MG, WEEKLY
     Route: 065

REACTIONS (2)
  - Pancytopenia [Recovered/Resolved]
  - Bundle branch block left [Not Recovered/Not Resolved]
